FAERS Safety Report 5257120-1 (Version None)
Quarter: 2007Q1

REPORT INFORMATION
  Report Type: 
  Country: None (occurrence: None)
  Receive Date: 20070305
  Receipt Date: 20070215
  Transmission Date: 20070707
  Serious: Yes (Hospitalization)
  Sender: FDA-Public Use
  Company Number: 2007BM000017

PATIENT
  Age: 21 Year
  Sex: Female

DRUGS (6)
  1. PREDNISOLONE [Suspect]
     Indication: DERMATOMYOSITIS
     Dosage: SEE IMAGE
  2. PREDNISOLONE [Suspect]
     Indication: DERMATOMYOSITIS
     Dosage: SEE IMAGE
  3. PREDNISOLONE [Suspect]
     Indication: DERMATOMYOSITIS
     Dosage: SEE IMAGE
  4. CYCLOSPORINE [Suspect]
     Indication: DERMATOMYOSITIS
     Dosage: 200 MG; QD;
  5. AZATHIOPRINE [Suspect]
     Indication: DERMATOMYOSITIS
     Dosage: SEE IMAGE
  6. AZATHIOPRINE [Suspect]
     Indication: DERMATOMYOSITIS
     Dosage: SEE IMAGE

REACTIONS (1)
  - PNEUMONIA CYTOMEGALOVIRAL [None]
